FAERS Safety Report 16195737 (Version 1)
Quarter: 2019Q2

REPORT INFORMATION
  Report Type: Spontaneous
  Country: GB (occurrence: GB)
  Receive Date: 20190415
  Receipt Date: 20190415
  Transmission Date: 20190711
  Serious: Yes (Other)
  Sender: FDA-Public Use
  Company Number: GB-TEVA-2019-GB-1037225

PATIENT
  Age: 52 Year
  Sex: Male
  Weight: 95.25 kg

DRUGS (1)
  1. AMOXICILLIN. [Suspect]
     Active Substance: AMOXICILLIN
     Indication: NASOPHARYNGITIS
     Route: 048
     Dates: start: 20190313, end: 20190316

REACTIONS (4)
  - Chest pain [Unknown]
  - Headache [Not Recovered/Not Resolved]
  - Nausea [Unknown]
  - Muscle tightness [Unknown]

NARRATIVE: CASE EVENT DATE: 20190313
